FAERS Safety Report 13574692 (Version 1)
Quarter: 2017Q2

REPORT INFORMATION
  Report Type: Spontaneous
  Country: TR (occurrence: TR)
  Receive Date: 20170523
  Receipt Date: 20170523
  Transmission Date: 20170830
  Serious: Yes (Hospitalization, Other)
  Sender: FDA-Public Use
  Company Number: TR-BAYER-2017-091259

PATIENT
  Age: 88 Year
  Sex: Female
  Weight: 55 kg

DRUGS (6)
  1. DIDERAL [Concomitant]
     Active Substance: PROPRANOLOL HYDROCHLORIDE
  2. GADOVIST [Suspect]
     Active Substance: GADOBUTROL
     Indication: ANGIOGRAM
     Dosage: 15 ML, UNK
     Route: 042
     Dates: start: 20170427, end: 20170428
  3. GADOVIST [Suspect]
     Active Substance: GADOBUTROL
     Indication: NUCLEAR MAGNETIC RESONANCE IMAGING BRAIN
  4. CORASPIN 100 MG [Suspect]
     Active Substance: ASPIRIN
  5. CIPRALEX [Concomitant]
     Active Substance: ESCITALOPRAM OXALATE
  6. EUTHYROX [Concomitant]
     Active Substance: LEVOTHYROXINE SODIUM

REACTIONS (4)
  - Hydrophobia [Recovered/Resolved]
  - Delirium [Recovered/Resolved]
  - Condition aggravated [Recovered/Resolved]
  - Contrast media deposition [None]

NARRATIVE: CASE EVENT DATE: 20170427
